FAERS Safety Report 6945522-4 (Version None)
Quarter: 2010Q3

REPORT INFORMATION
  Report Type: 
  Country: None (occurrence: None)
  Receive Date: 20100827
  Receipt Date: 20100817
  Transmission Date: 20110219
  Serious: Yes (Other)
  Sender: FDA-Public Use
  Company Number: IN-JNJFOC-20100806731

PATIENT
  Age: 18 Year
  Sex: Female

DRUGS (1)
  1. OFLOXACIN [Suspect]
     Indication: URINARY TRACT INFECTION
     Route: 065

REACTIONS (4)
  - DERMATITIS BULLOUS [None]
  - LEPROMATOUS LEPROSY [None]
  - NEURITIS [None]
  - PYREXIA [None]
